FAERS Safety Report 16982612 (Version 4)
Quarter: 2020Q4

REPORT INFORMATION
  Report Type: Report from Study
  Country: US (occurrence: US)
  Receive Date: 20191101
  Receipt Date: 20201125
  Transmission Date: 20210113
  Serious: Yes (Life-Threatening, Hospitalization, Other)
  Sender: FDA-Public Use
  Company Number: US-BIOGEN-2019BI00801173

PATIENT
  Age: 0 Year
  Sex: Female
  Weight: 10 kg

DRUGS (11)
  1. ALBUTEROL. [Concomitant]
     Active Substance: ALBUTEROL
     Indication: PRODUCT USED FOR UNKNOWN INDICATION
     Route: 065
  2. LASIX [Concomitant]
     Active Substance: FUROSEMIDE
     Indication: PRODUCT USED FOR UNKNOWN INDICATION
     Route: 065
  3. ZOFRAN [Concomitant]
     Active Substance: ONDANSETRON HYDROCHLORIDE
     Indication: PRODUCT USED FOR UNKNOWN INDICATION
     Dosage: PRN
     Route: 065
  4. MIRALAX [Concomitant]
     Active Substance: POLYETHYLENE GLYCOL 3350
     Indication: PRODUCT USED FOR UNKNOWN INDICATION
     Route: 065
  5. MELATONIN [Concomitant]
     Active Substance: MELATONIN
     Indication: PRODUCT USED FOR UNKNOWN INDICATION
     Route: 065
  6. SPINRAZA [Suspect]
     Active Substance: NUSINERSEN
     Indication: SPINAL MUSCULAR ATROPHY
     Dosage: MOST RECENT DOSE PRIOR TO EVENT IS 06 AUG 2019
     Route: 037
     Dates: start: 20190611
  7. QUETIAPINE. [Concomitant]
     Active Substance: QUETIAPINE
     Indication: PRODUCT USED FOR UNKNOWN INDICATION
     Route: 065
  8. COLACE [Concomitant]
     Active Substance: DOCUSATE SODIUM
     Indication: PRODUCT USED FOR UNKNOWN INDICATION
     Route: 065
  9. PRECEDEX [Concomitant]
     Active Substance: DEXMEDETOMIDINE HYDROCHLORIDE
     Indication: PRODUCT USED FOR UNKNOWN INDICATION
     Route: 065
  10. SENNA [Concomitant]
     Active Substance: SENNA LEAF\SENNOSIDES\SENNOSIDES A AND B
     Indication: PRODUCT USED FOR UNKNOWN INDICATION
     Route: 065
  11. MIDAZOLAM. [Concomitant]
     Active Substance: MIDAZOLAM
     Indication: PRODUCT USED FOR UNKNOWN INDICATION
     Dosage: PRN
     Route: 065

REACTIONS (19)
  - Blindness transient [Not Recovered/Not Resolved]
  - Muscle spasticity [Unknown]
  - Oxygen saturation decreased [Not Recovered/Not Resolved]
  - Aspartate aminotransferase increased [Unknown]
  - Cardio-respiratory arrest [Not Recovered/Not Resolved]
  - Respiratory failure [Unknown]
  - Brain injury [Not Recovered/Not Resolved]
  - Alanine aminotransferase increased [Unknown]
  - Asthenia [Unknown]
  - Deafness transitory [Unknown]
  - Vomiting [Recovered/Resolved]
  - Brain death [Not Recovered/Not Resolved]
  - Bone density abnormal [Unknown]
  - Enterovirus infection [Unknown]
  - Respiratory tract infection [Not Recovered/Not Resolved]
  - Seizure [Not Recovered/Not Resolved]
  - Tracheostomy malfunction [Not Recovered/Not Resolved]
  - Autonomic nervous system imbalance [Not Recovered/Not Resolved]
  - Rhinovirus infection [Unknown]

NARRATIVE: CASE EVENT DATE: 2019
